FAERS Safety Report 5719189-7 (Version None)
Quarter: 2008Q2

REPORT INFORMATION
  Report Type: 
  Country: None (occurrence: None)
  Receive Date: 20080428
  Receipt Date: 20080417
  Transmission Date: 20081010
  Serious: Yes (Other)
  Sender: FDA-Public Use
  Company Number: US-JNJFOC-20080404911

PATIENT
  Age: 15 Year
  Sex: Male

DRUGS (3)
  1. TYLENOL W/ CODEINE NO. 3 [Suspect]
     Indication: PAIN
     Dosage: AT NIGHT
     Route: 065
  2. TYLENOL (CAPLET) [Suspect]
     Route: 065
  3. TYLENOL (CAPLET) [Suspect]
     Indication: HEADACHE
     Route: 065

REACTIONS (1)
  - CONVULSION [None]
